FAERS Safety Report 8933239 (Version 1)
Quarter: 2012Q4

REPORT INFORMATION
  Report Type: 
  Country: IT (occurrence: IT)
  Receive Date: 20121129
  Receipt Date: 20121129
  Transmission Date: 20130627
  Serious: Yes (Other)
  Sender: FDA-Public Use
  Company Number: PHHY2012IT107478

PATIENT
  Sex: Female

DRUGS (1)
  1. ZOMETA [Suspect]
     Dosage: UNK UKN, three times a week cycle
     Dates: start: 20070321

REACTIONS (2)
  - Osteonecrosis of jaw [Unknown]
  - Pain in jaw [Unknown]
